FAERS Safety Report 19383588 (Version 3)
Quarter: 2022Q1

REPORT INFORMATION
  Report Type: Report from Study
  Country: AT (occurrence: AT)
  Receive Date: 20210607
  Receipt Date: 20220324
  Transmission Date: 20220424
  Serious: Yes (Hospitalization)
  Sender: FDA-Public Use
  Company Number: AT-ROCHE-2828128

PATIENT
  Age: 47 Year
  Sex: Female
  Weight: 58 kg

DRUGS (38)
  1. TRASTUZUMAB [Suspect]
     Active Substance: TRASTUZUMAB
     Indication: HER2 positive breast cancer
     Dosage: 6 MG/KG, EVERY 3 WEEKS
     Route: 042
     Dates: start: 20190724, end: 20190912
  2. PACLITAXEL [Suspect]
     Active Substance: PACLITAXEL
     Indication: HER2 positive breast cancer
     Dosage: 260 MG/M2, EVERY 3 WEEKS
     Route: 042
     Dates: start: 20190724, end: 20190912
  3. PERTUZUMAB [Suspect]
     Active Substance: PERTUZUMAB
     Indication: HER2 positive breast cancer
     Dosage: 420 MG, EVERY 3 WEEKS
     Route: 042
     Dates: start: 20190724, end: 20190912
  4. ADO-TRASTUZUMAB EMTANSINE [Suspect]
     Active Substance: ADO-TRASTUZUMAB EMTANSINE
     Indication: HER2 positive breast cancer
     Dosage: 3.6 MG/KG, EVERY 3 WEEKS
     Route: 042
     Dates: start: 20191014, end: 20200518
  5. ADO-TRASTUZUMAB EMTANSINE [Suspect]
     Active Substance: ADO-TRASTUZUMAB EMTANSINE
     Dosage: 3.6 MG, EVERY 3 WEEKS
     Route: 042
     Dates: start: 20200703, end: 20200703
  6. CAPECITABINE [Suspect]
     Active Substance: CAPECITABINE
     Indication: HER2 positive breast cancer
     Dosage: 500 MG
     Route: 048
     Dates: start: 20200923, end: 20201220
  7. CAPECITABINE [Suspect]
     Active Substance: CAPECITABINE
     Dosage: 500 MG
     Route: 048
     Dates: start: 20210109, end: 20210109
  8. LAPATINIB [Suspect]
     Active Substance: LAPATINIB
     Indication: HER2 positive breast cancer
     Dosage: 250 MG (FREQUENCY: OTHER)
     Route: 048
     Dates: start: 20200923, end: 20201228
  9. LAPATINIB [Suspect]
     Active Substance: LAPATINIB
     Dosage: 250 MG (FREQUENCY: OTHER)
     Route: 048
     Dates: start: 20210109, end: 20210109
  10. ALPRAZOLAM [Concomitant]
     Active Substance: ALPRAZOLAM
     Dosage: UNK(ONGOING = CHECKED)
     Dates: start: 20190715
  11. CALCIDURAN [ASCORBIC ACID;CALCIUM PHOSPHATE;CITRIC ACID;COLECALCIFEROL [Concomitant]
     Dosage: UNK (ONGOING)
     Dates: start: 20190717
  12. CEOLAT [Concomitant]
     Dosage: UNK(ONGOING = CHECKED)
     Dates: start: 20190815
  13. CITALOPRAM [Concomitant]
     Active Substance: CITALOPRAM HYDROBROMIDE
     Dosage: UNK(ONGOING = CHECKED)
     Dates: start: 20190715
  14. DRONABINOL [Concomitant]
     Active Substance: DRONABINOL
     Dosage: UNK(ONGOING = CHECKED)
     Dates: start: 20190716
  15. DRONABINOL [Concomitant]
     Active Substance: DRONABINOL
     Dosage: UNK(ONGOING = CHECKED)
     Dates: start: 20210705
  16. ENTEROBENE [Concomitant]
     Indication: Diarrhoea
     Dosage: UNK (ONGOING)
     Dates: start: 20210215
  17. EUTHYROX [Concomitant]
     Active Substance: LEVOTHYROXINE SODIUM
     Dosage: UNK(ONGOING = CHECKED)
     Dates: start: 20190703
  18. POLYETHYLENE GLYCOL 4000 [Concomitant]
     Active Substance: POLYETHYLENE GLYCOL 4000
     Dosage: UNK(ONGOING = CHECKED)
     Dates: start: 20190705
  19. DEXAMETHASONE [Concomitant]
     Active Substance: DEXAMETHASONE
     Indication: COVID-19
     Dosage: UNK(ONGOING = NOT CHECKED)
     Dates: start: 20210302, end: 20210304
  20. DEXAMETHASONE [Concomitant]
     Active Substance: DEXAMETHASONE
     Indication: Intracranial pressure increased
     Dosage: UNK(ONGOING = CHECKED)
     Dates: start: 20190704
  21. DEXAMETHASONE [Concomitant]
     Active Substance: DEXAMETHASONE
     Dosage: UNK(ONGOING = CHECKED)
     Dates: start: 20220115
  22. DEXAMETHASONE [Concomitant]
     Active Substance: DEXAMETHASONE
     Dosage: UNK(ONGOING = NOT CHECKED)
     Dates: start: 20211229, end: 20220110
  23. DEXAMETHASONE [Concomitant]
     Active Substance: DEXAMETHASONE
     Dosage: UNK
     Dates: start: 20220113, end: 20220114
  24. DEXAMETHASONE [Concomitant]
     Active Substance: DEXAMETHASONE
     Dosage: UNK
     Dates: start: 20220111, end: 20220112
  25. DEXAMETHASONE [Concomitant]
     Active Substance: DEXAMETHASONE
     Dosage: UNK(ONGOING = CHECKED)
     Dates: start: 20220110
  26. HYDROMORPHONE HYDROCHLORIDE [Concomitant]
     Active Substance: HYDROMORPHONE HYDROCHLORIDE
     Dosage: UNK(ONGOING = CHECKED )
     Dates: start: 20190716
  27. LENDORM [Concomitant]
     Active Substance: BROTIZOLAM
     Indication: Insomnia
     Dosage: UNK (ONGOING)
     Dates: start: 20211229
  28. LOVENOX [Concomitant]
     Active Substance: ENOXAPARIN SODIUM
     Indication: COVID-19
     Dosage: UNK(ONGOING = NOT CHECKED)
     Dates: start: 20210302, end: 20210305
  29. ACETAMINOPHEN [Concomitant]
     Active Substance: ACETAMINOPHEN
     Dosage: UNK(ONGOING = CHECKED)
     Dates: start: 20190701
  30. OLANZAPINE [Concomitant]
     Active Substance: OLANZAPINE
     Dosage: UNK(ONGOING = CHECKED)
     Dates: start: 20190904
  31. PANTOPRAZOLE SODIUM [Concomitant]
     Active Substance: PANTOPRAZOLE SODIUM
     Indication: COVID-19
     Dosage: UNK(ONGOING = NOT CHECKED)
     Dates: start: 20210302, end: 20210303
  32. ACETAMINOPHEN [Concomitant]
     Active Substance: ACETAMINOPHEN
     Indication: COVID-19
     Dosage: UNK(ONGOING = CHECKED)
     Dates: start: 20210302, end: 20210303
  33. SUCRALAN [Concomitant]
     Dosage: UNK(ONGOING = CHECKED)
     Dates: start: 20190701
  34. TRAZODONE HYDROCHLORIDE [Concomitant]
     Active Substance: TRAZODONE HYDROCHLORIDE
     Dosage: UNK
     Dates: start: 20190716
  35. ZOFRAN [Concomitant]
     Active Substance: ONDANSETRON HYDROCHLORIDE
     Indication: COVID-19
     Dosage: UNK(ONGOING = NOT CHECKED)
     Dates: start: 20210302, end: 20210302
  36. ZOFRAN [Concomitant]
     Active Substance: ONDANSETRON HYDROCHLORIDE
     Dosage: UNK(ONGOING = CHECKED)
     Dates: start: 20190704
  37. ZOFRAN [Concomitant]
     Active Substance: ONDANSETRON HYDROCHLORIDE
     Dosage: UNK(ONGOING = CHECKED)
     Dates: start: 20190701
  38. ZOFRAN [Concomitant]
     Active Substance: ONDANSETRON HYDROCHLORIDE
     Dosage: UNK(ONGOING = CHECKED)
     Dates: start: 20220110

REACTIONS (1)
  - COVID-19 [Not Recovered/Not Resolved]

NARRATIVE: CASE EVENT DATE: 20210222
